FAERS Safety Report 16893147 (Version 2)
Quarter: 2020Q1

REPORT INFORMATION
  Report Type: Report from Study
  Country: US (occurrence: US)
  Receive Date: 20191008
  Receipt Date: 20200219
  Transmission Date: 20200409
  Serious: Yes (Death, Hospitalization)
  Sender: FDA-Public Use
  Company Number: US-ROCHE-2422007

PATIENT
  Age: 73 Year
  Sex: Male

DRUGS (2)
  1. ERIVEDGE [Suspect]
     Active Substance: VISMODEGIB
     Indication: DISEASE SUSCEPTIBILITY
  2. ERIVEDGE [Suspect]
     Active Substance: VISMODEGIB
     Indication: SCROTAL CANCER
     Dosage: TAKE 1 TABLET BY MOUTH DAILY
     Route: 048

REACTIONS (4)
  - Off label use [Unknown]
  - Intestinal obstruction [Unknown]
  - Death [Fatal]
  - Intentional product use issue [Unknown]

NARRATIVE: CASE EVENT DATE: 201911
